FAERS Safety Report 11039823 (Version 2)
Quarter: 2015Q2

REPORT INFORMATION
  Report Type: Spontaneous
  Country: US (occurrence: US)
  Receive Date: 20150416
  Receipt Date: 20150525
  Transmission Date: 20150821
  Serious: No
  Sender: FDA-Public Use
  Company Number: US-JNJFOC-20141021032

PATIENT
  Age: 81 Year
  Sex: Male
  Weight: 107.05 kg

DRUGS (4)
  1. XARELTO [Suspect]
     Active Substance: RIVAROXABAN
     Indication: THROMBOSIS PROPHYLAXIS
     Route: 048
     Dates: start: 20140908, end: 201410
  2. METOPROLOL [Concomitant]
     Active Substance: METOPROLOL
     Indication: ARRHYTHMIA
     Route: 048
  3. CILOSTAZOL. [Concomitant]
     Active Substance: CILOSTAZOL
     Indication: BLOOD DISORDER
     Route: 048
  4. XARELTO [Suspect]
     Active Substance: RIVAROXABAN
     Indication: HIP ARTHROPLASTY
     Route: 048
     Dates: start: 20140908, end: 201410

REACTIONS (1)
  - Purpura [Not Recovered/Not Resolved]

NARRATIVE: CASE EVENT DATE: 20141025
